FAERS Safety Report 24082582 (Version 1)
Quarter: 2024Q3

REPORT INFORMATION
  Report Type: Report from Study
  Country: DE (occurrence: DE)
  Receive Date: 20240712
  Receipt Date: 20240712
  Transmission Date: 20241017
  Serious: Yes (Other)
  Sender: ROCHE
  Company Number: DE-ROCHE-10000005988

PATIENT

DRUGS (1)
  1. HERCEPTIN [Suspect]
     Active Substance: TRASTUZUMAB
     Indication: Breast cancer
     Route: 065

REACTIONS (11)
  - Erythema [Unknown]
  - Seroma [Unknown]
  - Impaired healing [Unknown]
  - Seroma drainage [Unknown]
  - Telangiectasia [Unknown]
  - Fibrosis [Unknown]
  - Pain [Unknown]
  - Ulcer [Unknown]
  - Pigmentation disorder [Unknown]
  - Lymphoedema [Unknown]
  - Breast oedema [Unknown]
